FAERS Safety Report 15737522 (Version 1)
Quarter: 2018Q4

REPORT INFORMATION
  Report Type: Spontaneous
  Country: PL (occurrence: PL)
  Receive Date: 20181219
  Receipt Date: 20181219
  Transmission Date: 20190205
  Serious: Yes (Other)
  Sender: FDA-Public Use
  Company Number: PHHY2018PL183323

PATIENT
  Age: 47 Year
  Sex: Male

DRUGS (27)
  1. PREDNISONE. [Suspect]
     Active Substance: PREDNISONE
     Dosage: 15 MG, UNK
     Route: 065
     Dates: start: 201504
  2. PREDNISONE. [Suspect]
     Active Substance: PREDNISONE
     Dosage: 20 MG, UNK
     Route: 065
     Dates: start: 201701
  3. PREDNISONE. [Suspect]
     Active Substance: PREDNISONE
     Indication: BRONCHIAL HAEMORRHAGE
     Dosage: 80 MG, UNK
     Route: 065
     Dates: start: 201312
  4. PREDNISONE. [Suspect]
     Active Substance: PREDNISONE
     Dosage: 55 MG, UNK
     Route: 065
     Dates: end: 201408
  5. PREDNISONE. [Suspect]
     Active Substance: PREDNISONE
     Dosage: 25 MG, UNK
     Route: 065
     Dates: start: 201408
  6. PREDNISONE. [Suspect]
     Active Substance: PREDNISONE
     Dosage: 75 MG, UNK (HIGH GCS DOSE)
     Route: 065
     Dates: start: 201502
  7. PREDNISONE. [Suspect]
     Active Substance: PREDNISONE
     Dosage: 65 MG, UNK
     Route: 065
     Dates: end: 201504
  8. PREDNISONE. [Suspect]
     Active Substance: PREDNISONE
     Dosage: 20 MG, UNK
     Route: 065
     Dates: start: 201605
  9. AMOXICILLIN. [Concomitant]
     Active Substance: AMOXICILLIN
     Indication: PRODUCT USED FOR UNKNOWN INDICATION
     Route: 065
  10. PREDNISONE. [Suspect]
     Active Substance: PREDNISONE
     Dosage: 80 MG, UNK
     Route: 065
     Dates: start: 201701
  11. MYCOPHENOLATE MOFETIL. [Suspect]
     Active Substance: MYCOPHENOLATE MOFETIL
     Dosage: 3 G, QD
     Route: 065
     Dates: start: 201701
  12. CYCLOPHOSPHAMIDE. [Suspect]
     Active Substance: CYCLOPHOSPHAMIDE
     Indication: BRONCHIAL HAEMORRHAGE
     Dosage: 1.5 G, Q4W (SIX PULSES)
     Route: 065
     Dates: start: 201407, end: 201502
  13. METHYLPREDNISOLONE. [Suspect]
     Active Substance: METHYLPREDNISOLONE
     Dosage: 1000 MG, UNK
     Route: 065
     Dates: start: 201701
  14. CLARITHROMYCIN. [Concomitant]
     Active Substance: CLARITHROMYCIN
     Indication: PRODUCT USED FOR UNKNOWN INDICATION
     Route: 065
  15. PREDNISONE. [Suspect]
     Active Substance: PREDNISONE
     Indication: DYSPNOEA
     Dosage: 20 MG, UNK
     Route: 065
     Dates: start: 201401
  16. PREDNISONE. [Suspect]
     Active Substance: PREDNISONE
     Dosage: 60 MG, UNK
     Route: 065
     Dates: start: 201408
  17. PREDNISONE. [Suspect]
     Active Substance: PREDNISONE
     Dosage: 40 MG, UNK
     Route: 065
     Dates: start: 201605
  18. PREDNISONE. [Suspect]
     Active Substance: PREDNISONE
     Dosage: 100 MG, UNK
     Route: 065
     Dates: start: 201502
  19. PREDNISONE. [Suspect]
     Active Substance: PREDNISONE
     Dosage: 50 MG, UNK
     Route: 065
     Dates: end: 201701
  20. MYCOPHENOLATE MOFETIL. [Suspect]
     Active Substance: MYCOPHENOLATE MOFETIL
     Dosage: 2 G, QD
     Route: 065
     Dates: start: 201502
  21. MYCOPHENOLATE MOFETIL. [Suspect]
     Active Substance: MYCOPHENOLATE MOFETIL
     Dosage: 3 G, QD (GRADUALLY INCREASED)
     Route: 065
     Dates: start: 201504
  22. METHYLPREDNISOLONE. [Suspect]
     Active Substance: METHYLPREDNISOLONE
     Indication: BRONCHIAL HAEMORRHAGE
     Dosage: 500 MG, QD FOR 3 DAYS
     Route: 065
     Dates: start: 201408
  23. PREDNISONE. [Suspect]
     Active Substance: PREDNISONE
     Dosage: 90 MG, UNK
     Route: 065
     Dates: end: 201502
  24. MYCOPHENOLATE MOFETIL. [Suspect]
     Active Substance: MYCOPHENOLATE MOFETIL
     Indication: BRONCHIAL HAEMORRHAGE
     Dosage: 1 G, QD
     Route: 065
     Dates: start: 201502
  25. MYCOPHENOLATE MOFETIL. [Suspect]
     Active Substance: MYCOPHENOLATE MOFETIL
     Dosage: 2 G, QD
     Route: 065
     Dates: start: 201605
  26. CLAVULANIC ACID [Concomitant]
     Active Substance: CLAVULANIC ACID
     Indication: PRODUCT USED FOR UNKNOWN INDICATION
     Route: 065
  27. WARFARIN [Concomitant]
     Active Substance: WARFARIN
     Indication: DEEP VEIN THROMBOSIS
     Route: 065

REACTIONS (12)
  - Pathological fracture [Unknown]
  - Pulmonary alveolar haemorrhage [Recovering/Resolving]
  - Respiratory failure [Unknown]
  - Disease recurrence [Recovering/Resolving]
  - Product use in unapproved indication [Unknown]
  - Rib fracture [Unknown]
  - Vitamin D deficiency [Unknown]
  - Pneumonia [Unknown]
  - Multiple fractures [Unknown]
  - Haemoptysis [Unknown]
  - Therapeutic response decreased [Unknown]
  - Osteoporosis [Unknown]

NARRATIVE: CASE EVENT DATE: 201504
